FAERS Safety Report 22015680 (Version 6)
Quarter: 2023Q2

REPORT INFORMATION
  Report Type: Report from Study
  Country: ES (occurrence: ES)
  Receive Date: 20230221
  Receipt Date: 20230405
  Transmission Date: 20230722
  Serious: Yes (Life-Threatening, Hospitalization)
  Sender: FDA-Public Use
  Company Number: ES-GLAXOSMITHKLINE-ES2023GSK027955

PATIENT

DRUGS (9)
  1. NIRAPARIB [Suspect]
     Active Substance: NIRAPARIB
     Indication: Transitional cell carcinoma
     Dosage: 100 MG
     Route: 048
     Dates: start: 20220321, end: 20230216
  2. CABOZANTINIB [Suspect]
     Active Substance: CABOZANTINIB
     Indication: Transitional cell carcinoma
     Dosage: 40 MG
     Route: 048
     Dates: start: 20220321, end: 20230216
  3. OMEPRAZOLE [Concomitant]
     Active Substance: OMEPRAZOLE
     Indication: Gastrointestinal disorder prophylaxis
     Dosage: 20 MG, QD
     Route: 048
     Dates: start: 202112
  4. OXYCODONE HYDROCHLORIDE [Concomitant]
     Active Substance: OXYCODONE HYDROCHLORIDE
     Indication: Pain
     Dosage: 15 MG, BID
     Route: 048
     Dates: start: 20230201
  5. OXYCODONE HYDROCHLORIDE [Concomitant]
     Active Substance: OXYCODONE HYDROCHLORIDE
     Indication: Pain
     Dosage: 5 MG, ADLIBITUM
     Route: 048
     Dates: start: 20220328
  6. GABAPENTIN [Concomitant]
     Active Substance: GABAPENTIN
     Indication: Pain
     Dosage: 300 MG, BID
     Route: 048
     Dates: start: 20221118
  7. PRIMPERAN [Concomitant]
     Active Substance: METOCLOPRAMIDE HYDROCHLORIDE
     Indication: Nausea
     Dosage: UNK
     Route: 048
     Dates: start: 20221007
  8. AMLODIPINE [Concomitant]
     Active Substance: AMLODIPINE BESYLATE
     Indication: Hypertension
     Dosage: 10 MG, QD
     Route: 048
     Dates: start: 20220421
  9. ENALAPRIL [Concomitant]
     Active Substance: ENALAPRIL
     Indication: Hypertension
     Dosage: 10 MG, BID
     Route: 048
     Dates: start: 20220909

REACTIONS (1)
  - Bladder perforation [Recovered/Resolved]

NARRATIVE: CASE EVENT DATE: 20230212
